FAERS Safety Report 24110502 (Version 2)
Quarter: 2024Q3

REPORT INFORMATION
  Report Type: Report from Study
  Country: US (occurrence: US)
  Receive Date: 20240718
  Receipt Date: 20240730
  Transmission Date: 20241017
  Serious: Yes (Life-Threatening)
  Sender: PHARMING GROUP
  Company Number: US-PHARMING-PHAUS2024000594

PATIENT

DRUGS (2)
  1. RUCONEST [Suspect]
     Active Substance: CONESTAT ALFA
     Indication: Hereditary angioedema
     Dosage: 4200 IU, PRN
     Route: 042
     Dates: start: 2015
  2. RUCONEST [Suspect]
     Active Substance: CONESTAT ALFA
     Dosage: 4200 IU, EVERY THREE DAYS
     Route: 042
     Dates: start: 2018

REACTIONS (2)
  - Road traffic accident [Recovered/Resolved]
  - Intentional product use issue [Unknown]

NARRATIVE: CASE EVENT DATE: 20240612
